FAERS Safety Report 17863157 (Version 1)
Quarter: 2020Q2

REPORT INFORMATION
  Report Type: Report from Study
  Country: US (occurrence: US)
  Receive Date: 20200605
  Receipt Date: 20200605
  Transmission Date: 20200714
  Serious: Yes (Other)
  Sender: FDA-Public Use
  Company Number: US-BIOGEN-2020BI00881386

PATIENT
  Age: 59 Year
  Sex: Female

DRUGS (1)
  1. PLEGRIDY [Suspect]
     Active Substance: PEGINTERFERON BETA-1A
     Indication: MULTIPLE SCLEROSIS
     Route: 065

REACTIONS (6)
  - Blood cholesterol increased [Unknown]
  - Pain [Unknown]
  - Depression [Unknown]
  - Myocardial infarction [Unknown]
  - Neuralgia [Unknown]
  - Thrombosis [Unknown]

NARRATIVE: CASE EVENT DATE: 202001
